FAERS Safety Report 19458841 (Version 6)
Quarter: 2021Q3

REPORT INFORMATION
  Report Type: Report from Study
  Country: None (occurrence: CO)
  Receive Date: 20210624
  Receipt Date: 20210709
  Transmission Date: 20211014
  Serious: Yes (Death, Hospitalization, Other)
  Sender: FDA-Public Use
  Company Number: CO-ABBVIE-21K-036-3901240-00

PATIENT
  Age: 67 Year
  Sex: Male
  Weight: 60 kg

DRUGS (2)
  1. VENCLEXTA [Suspect]
     Active Substance: VENETOCLAX
     Indication: CHRONIC LYMPHOCYTIC LEUKAEMIA
     Route: 048
     Dates: start: 20200807, end: 20210617
  2. COVID?19 VACCINE NOS. [Suspect]
     Active Substance: COVID-19 VACCINE NOS
     Indication: COVID-19 IMMUNISATION
     Dosage: FIRST DOSE
     Route: 030
     Dates: start: 20210503, end: 20210503

REACTIONS (10)
  - Disturbance in social behaviour [Recovering/Resolving]
  - COVID-19 [Fatal]
  - Pruritus [Recovered/Resolved]
  - Lung disorder [Recovering/Resolving]
  - Discouragement [Recovering/Resolving]
  - Asthenia [Recovering/Resolving]
  - Bacterial infection [Recovering/Resolving]
  - Vaccination site pain [Recovering/Resolving]
  - Decreased appetite [Recovering/Resolving]
  - Influenza [Recovering/Resolving]

NARRATIVE: CASE EVENT DATE: 2021
